FAERS Safety Report 19528611 (Version 2)
Quarter: 2025Q2

REPORT INFORMATION
  Report Type: Spontaneous
  Country: IT (occurrence: IT)
  Receive Date: 20210713
  Receipt Date: 20250626
  Transmission Date: 20250716
  Serious: Yes (Other)
  Sender: AUROBINDO
  Company Number: IT-SA-2021SA210599

PATIENT
  Age: 59 Year
  Sex: Female

DRUGS (1)
  1. IMATINIB [Suspect]
     Active Substance: IMATINIB
     Indication: Chronic myeloid leukaemia
     Dosage: 400 MILLIGRAM, ONCE A DAY
     Route: 065

REACTIONS (12)
  - Pain [Recovered/Resolved]
  - Inflammation [Recovered/Resolved]
  - Neutrophilia [Recovered/Resolved]
  - Leukocytosis [Recovered/Resolved]
  - Anaemia [Recovered/Resolved]
  - Erythema [Recovered/Resolved]
  - Skin ulcer [Recovered/Resolved]
  - Wound [Recovered/Resolved]
  - Genital discharge [Recovered/Resolved]
  - Tissue injury [Recovered/Resolved]
  - Acute phase reaction [Recovered/Resolved]
  - Pyoderma gangrenosum [Recovered/Resolved]
